FAERS Safety Report 5575889-3 (Version None)
Quarter: 2007Q4

REPORT INFORMATION
  Report Type: 
  Country: None (occurrence: None)
  Receive Date: 20071228
  Receipt Date: 20071227
  Transmission Date: 20080405
  Serious: Yes (Hospitalization)
  Sender: FDA-Public Use
  Company Number: PL-BRISTOL-MYERS SQUIBB COMPANY-14025365

PATIENT
  Age: 71 Year
  Sex: Male
  Weight: 52 kg

DRUGS (1)
  1. ETOPOSIDE [Suspect]
     Indication: LUNG NEOPLASM MALIGNANT
     Dosage: 1 DOSAGE FORM=190(UNIT NOT SPECIFIED).
     Route: 042
     Dates: start: 20071030, end: 20071030

REACTIONS (1)
  - ANGINA PECTORIS [None]
